FAERS Safety Report 8612981-0 (Version None)
Quarter: 2012Q3

REPORT INFORMATION
  Report Type: 
  Country: None (occurrence: None)
  Receive Date: 20120822
  Receipt Date: 20120814
  Transmission Date: 20120928
  Serious: Yes (Hospitalization)
  Sender: FDA-Public Use
  Company Number: US-BAYER-2012-085622

PATIENT
  Age: 51 Year
  Sex: Female
  Weight: 83 kg

DRUGS (8)
  1. MIDAZOLAM [Concomitant]
     Dosage: UNK
     Dates: start: 20070413
  2. SUFENTANIL CITRATE [Concomitant]
     Dosage: UNK
     Dates: start: 20070413
  3. MAGNESIUM SULFATE [Concomitant]
     Dosage: UNK
     Dates: start: 20070413
  4. SODIUM BICARBONATE [Concomitant]
     Dosage: UNK
     Dates: start: 20070413
  5. LIDOCAINE [Concomitant]
     Dosage: UNK
     Dates: start: 20070413
  6. CALCIUM CHLORIDE [Concomitant]
     Dosage: UNK
     Dates: start: 20070413
  7. TRASYLOL [Suspect]
     Indication: MITRAL VALVE REPLACEMENT
     Dosage: LOADING DOSE OF 200ML
     Dates: start: 20070413
  8. HEPARIN [Concomitant]
     Dosage: UNK
     Dates: start: 20070413

REACTIONS (2)
  - HEMIPARESIS [None]
  - CEREBROVASCULAR ACCIDENT [None]
